FAERS Safety Report 8480224-7 (Version None)
Quarter: 2012Q2

REPORT INFORMATION
  Report Type: 
  Country: None (occurrence: None)
  Receive Date: 20120629
  Receipt Date: 20120622
  Transmission Date: 20120825
  Serious: Yes (Other)
  Sender: FDA-Public Use
  Company Number: US-RB-041765-12

PATIENT
  Age: 14 Year
  Sex: Female

DRUGS (1)
  1. SUBOXONE [Suspect]
     Indication: CHILD ABUSE
     Dosage: UNKNOWN DOSAGE DETAILS
     Route: 065

REACTIONS (2)
  - CHILD ABUSE [None]
  - SEXUAL ABUSE [None]
